FAERS Safety Report 7476903-0 (Version None)
Quarter: 2011Q2

REPORT INFORMATION
  Report Type: 
  Country: None (occurrence: None)
  Receive Date: 20110512
  Receipt Date: 20101227
  Transmission Date: 20111010
  Serious: Yes (Life-Threatening, Hospitalization)
  Sender: FDA-Public Use
  Company Number: US-BAYER-201019456NA

PATIENT
  Age: 37 Year
  Sex: Female
  Weight: 108.84 kg

DRUGS (66)
  1. CEPHALEXIN [Concomitant]
     Dates: start: 20080124
  2. FLUCONAZOLE [Concomitant]
     Dates: start: 20100101
  3. ETODOLAC [Concomitant]
     Dates: start: 20080515
  4. DEXTROAMPHETAMINE [Concomitant]
     Indication: NARCOLEPSY
     Dates: start: 20070101, end: 20100101
  5. DEXTROAMPHETAMINE [Concomitant]
     Dosage: 10 MG, BID
     Dates: start: 20080801
  6. TRAZODONE HCL [Concomitant]
     Indication: ANXIETY
     Dates: start: 20090101, end: 20100101
  7. ADDERALL 10 [Concomitant]
     Dosage: 10 MG, BID
  8. FLUCONAZOLE [Concomitant]
     Dates: start: 20040101
  9. ETODOLAC [Concomitant]
     Dates: start: 20081001
  10. INDOMETHACIN [Concomitant]
  11. ORPHENADRINE CITRATE [Concomitant]
     Indication: MUSCLE RELAXANT THERAPY
     Dates: start: 20080101
  12. ELMIRON [Concomitant]
     Indication: BLADDER PAIN
  13. MECLIZINE [Concomitant]
     Indication: PAIN
     Dates: start: 20080101
  14. LYRICA [Concomitant]
     Indication: NEURALGIA
     Dates: start: 20080101
  15. PAROXETINE HCL [Concomitant]
     Dosage: 20 MG, CONT
     Dates: start: 20080801
  16. SULFA [Concomitant]
  17. AMPHETAMINE AND DEXTROAMPHETAMINE SALTS [Concomitant]
     Dates: start: 20070101, end: 20100615
  18. CIPRO [Concomitant]
  19. SULFA [Concomitant]
  20. ETODOLAC [Concomitant]
     Dosage: 200 MG, PRN
  21. NAPROXEN [Concomitant]
     Dates: start: 20080515
  22. AMITRIPTYLINE HCL [Concomitant]
     Indication: DEPRESSION
     Dates: start: 20040201
  23. TRAMADOL HCL [Concomitant]
     Dosage: 50 MG, PRN
  24. TRAZODONE HCL [Concomitant]
     Indication: PAIN
     Dates: start: 20060101
  25. HYDROCODONE BITARTRATE AND ACETAMINOPHEN [Concomitant]
     Indication: PAIN
     Dosage: UNK
  26. LORAZEPAM [Concomitant]
     Indication: INSOMNIA
     Dosage: UNK
  27. ADDERALL 10 [Concomitant]
     Dosage: 10 MG, HS
  28. CLONAZEPAM [Concomitant]
     Dates: start: 20090619, end: 20091130
  29. PROAIR HFA [Concomitant]
     Indication: ASTHMA
     Dates: start: 20090609
  30. BUPROPION HYDROCHLORIDE [Concomitant]
     Indication: PAIN
     Dosage: UNK
  31. TRAZODONE HCL [Concomitant]
     Indication: DEPRESSION
  32. LORAZEPAM [Concomitant]
     Indication: ANXIETY
  33. LYRICA [Concomitant]
     Dates: start: 20090101
  34. CLONAZEPAM [Concomitant]
     Dates: start: 20100102
  35. IMITREX [Concomitant]
     Indication: PAIN
     Dates: start: 20091104
  36. TIZANIDINE [Concomitant]
     Indication: MUSCLE RELAXANT THERAPY
     Dosage: 4 MG, PRN
     Dates: start: 20080501
  37. VESICARE [Concomitant]
     Dosage: 10 MG, CONT
  38. YAZ [Suspect]
     Indication: ORAL CONTRACEPTION
     Dosage: UNK
     Route: 048
     Dates: start: 20071101, end: 20071201
  39. PENICILLIN [Concomitant]
  40. DOXYCYCLINE [Concomitant]
  41. FLUCONAZOLE [Concomitant]
     Dates: start: 20050101
  42. FLUCONAZOLE [Concomitant]
     Dates: start: 20060101
  43. FLUCONAZOLE [Concomitant]
     Dates: start: 20090101
  44. CLONAZEPAM [Concomitant]
     Dates: start: 20100207
  45. NAPROXEN [Concomitant]
     Dates: start: 20081001
  46. CELEBREX [Concomitant]
     Dates: start: 20080220
  47. OXYTROL [Concomitant]
     Indication: BLADDER PAIN
     Dosage: UNK
  48. FENTANYL [Concomitant]
     Indication: PAIN
     Route: 062
  49. PROPOXYPHENE NAPSYLATE W/ ACETAMINOPHEN [Concomitant]
     Dosage: 650 MG, PRN
     Dates: start: 20080801
  50. YAZ [Suspect]
     Indication: MOOD SWINGS
  51. YAZ [Suspect]
     Indication: HOT FLUSH
  52. FLUCONAZOLE [Concomitant]
     Dates: start: 20080101
  53. GABAPENTIN [Concomitant]
     Dates: start: 20080325
  54. AMITRIPTYLINE HCL [Concomitant]
     Dosage: 10 MG, HS
     Dates: start: 20080501
  55. ELMIRON [Concomitant]
     Indication: CYSTITIS INTERSTITIAL
     Dosage: UNK
  56. OXYCODONE HCL AND ACETAMINOPHEN [Concomitant]
     Dates: start: 20080101
  57. FENTANYL [Concomitant]
     Indication: PAIN
     Route: 062
  58. YAZ [Suspect]
     Indication: PREMENSTRUAL SYNDROME
     Dosage: UNK
     Route: 048
     Dates: start: 20080501, end: 20080701
  59. DIVALPROEX SODIUM [Concomitant]
     Dates: start: 20100217
  60. LORATADINE [Concomitant]
     Indication: MULTIPLE ALLERGIES
     Dosage: UNK
  61. TRAMADOL HCL [Concomitant]
     Indication: PAIN
     Dates: start: 20050101, end: 20090101
  62. FLUOXETINE [Concomitant]
     Indication: DEPRESSION
     Dates: start: 20050101
  63. LEXAPRO [Concomitant]
     Indication: PREMENSTRUAL SYNDROME
     Dosage: 10 MG, CONT
     Dates: start: 20080801, end: 20090315
  64. SEROQUEL [Concomitant]
     Indication: BIPOLAR DISORDER
     Dosage: UNK
  65. ELAVIL [Concomitant]
     Dosage: 10 MG, CONT
  66. PENICILLIN VK [Concomitant]
     Dosage: 500 MG, QID
     Dates: start: 20080624, end: 20080703

REACTIONS (11)
  - DEEP VEIN THROMBOSIS [None]
  - PAIN IN EXTREMITY [None]
  - PULMONARY EMBOLISM [None]
  - HYPOAESTHESIA [None]
  - PALPITATIONS [None]
  - DYSPNOEA [None]
  - OEDEMA PERIPHERAL [None]
  - PAIN [None]
  - CHEST PAIN [None]
  - FATIGUE [None]
  - NAUSEA [None]
